FAERS Safety Report 5997849-0 (Version None)
Quarter: 2008Q4

REPORT INFORMATION
  Report Type: 
  Country: None (occurrence: None)
  Receive Date: 20081212
  Receipt Date: 20081125
  Transmission Date: 20090506
  Serious: No
  Sender: FDA-Public Use
  Company Number: US-ABBOTT-08P-163-0489689-00

PATIENT
  Sex: Female

DRUGS (7)
  1. HUMIRA [Suspect]
     Indication: PSORIASIS
     Route: 058
     Dates: start: 20080201
  2. HUMIRA [Suspect]
     Indication: PSORIATIC ARTHROPATHY
  3. DYAZIDE [Suspect]
     Indication: HYPERTENSION
     Dosage: DECREASED TO 25MG TAKES 3 DAYS A WEEK
     Route: 048
     Dates: start: 20081101
  4. DYAZIDE [Suspect]
     Indication: CARDIAC DISORDER
     Dosage: 25MG QD
     Route: 048
     Dates: end: 20081101
  5. IMS MULTIVITAMIN [Concomitant]
     Indication: DRUG USE FOR UNKNOWN INDICATION
  6. ACETYLSALICYLIC ACID SRT [Concomitant]
     Indication: DRUG USE FOR UNKNOWN INDICATION
     Route: 048
  7. CALCIUM-SANDOZ [Concomitant]
     Indication: OSTEOPOROSIS

REACTIONS (1)
  - DIZZINESS [None]
